FAERS Safety Report 16062933 (Version 4)
Quarter: 2019Q3

REPORT INFORMATION
  Report Type: Spontaneous
  Country: US (occurrence: US)
  Receive Date: 20190312
  Receipt Date: 20190917
  Transmission Date: 20191004
  Serious: No
  Sender: FDA-Public Use
  Company Number: US-SA-2019SA067041

PATIENT
  Age: 39 Year
  Sex: Female

DRUGS (1)
  1. DUPILUMAB [Suspect]
     Active Substance: DUPILUMAB
     Indication: ASTHMA
     Dosage: 300 MG, QOW
     Route: 058
     Dates: start: 20190218

REACTIONS (9)
  - Eye pain [Unknown]
  - Hypersensitivity [Unknown]
  - Pain [Unknown]
  - Arthralgia [Unknown]
  - Asthenopia [Unknown]
  - Eye swelling [Recovered/Resolved]
  - Product use issue [Unknown]
  - Photophobia [Unknown]
  - Visual impairment [Unknown]

NARRATIVE: CASE EVENT DATE: 20190306
